FAERS Safety Report 7323411-3 (Version None)
Quarter: 2011Q1

REPORT INFORMATION
  Report Type: 
  Country: None (occurrence: None)
  Receive Date: 20110301
  Receipt Date: 20110219
  Transmission Date: 20110831
  Serious: Yes (Hospitalization)
  Sender: FDA-Public Use
  Company Number: US-PFIZER INC-2011037083

PATIENT
  Sex: Female

DRUGS (5)
  1. LEVOTHYROXINE [Concomitant]
     Indication: HYPOTHYROIDISM
     Dosage: 150 MCG, 1X/DAY
     Route: 048
     Dates: start: 20050127
  2. CP-751,871 [Suspect]
     Indication: BREAST CANCER
     Dosage: 1872 MG, CYCLIC, EVERY 3 WEEKS
     Route: 042
     Dates: start: 20080813
  3. VICODIN [Concomitant]
     Indication: PAIN
     Dosage: 5-500 MG, AS NEEDED EVERY 6 HOURS
     Route: 048
     Dates: start: 20080925
  4. EXEMESTANE [Suspect]
     Indication: BREAST CANCER
     Dosage: 25 MG, 1X/DAY
     Route: 048
     Dates: start: 20080813
  5. PROMETHAZINE HYDROCHLORIDE [Concomitant]
     Indication: NAUSEA
     Dosage: 25 MG, AS NEEDED EVERY 6 HOURS
     Route: 048
     Dates: start: 20080925

REACTIONS (1)
  - PANCREATITIS [None]
